FAERS Safety Report 11210678 (Version 1)
Quarter: 2015Q2

REPORT INFORMATION
  Report Type: Spontaneous
  Country: US (occurrence: US)
  Receive Date: 20150622
  Receipt Date: 20150622
  Transmission Date: 20150821
  Serious: No
  Sender: FDA-Public Use
  Company Number: US-SA-2015SA016514

PATIENT
  Sex: Female

DRUGS (1)
  1. PHISOHEX [Suspect]
     Active Substance: HEXACHLOROPHENE
     Route: 065

REACTIONS (1)
  - Therapeutic response unexpected [Unknown]
